FAERS Safety Report 23706679 (Version 1)
Quarter: 2024Q2

REPORT INFORMATION
  Report Type: Spontaneous
  Country: US (occurrence: None)
  Receive Date: 20240403
  Receipt Date: 20240403
  Transmission Date: 20240716
  Serious: Yes (Death)
  Sender: FDA-Public Use
  Company Number: None

PATIENT
  Age: 79 Year
  Sex: Male

DRUGS (1)
  1. PIRFENIDONE [Suspect]
     Active Substance: PIRFENIDONE
     Indication: Interstitial lung disease
     Dosage: 267MG TID ORAL?
     Route: 048
     Dates: start: 20240315, end: 20240321

REACTIONS (8)
  - Feeling abnormal [None]
  - Abdominal discomfort [None]
  - Vomiting [None]
  - Dyspnoea [None]
  - Respiratory failure [None]
  - Pulmonary fibrosis [None]
  - Pneumonia aspiration [None]
  - Terminal state [None]

NARRATIVE: CASE EVENT DATE: 20240402
